FAERS Safety Report 9772367 (Version 1)
Quarter: 2013Q4

REPORT INFORMATION
  Report Type: Spontaneous
  Country: US (occurrence: US)
  Receive Date: 20131219
  Receipt Date: 20131219
  Transmission Date: 20140711
  Serious: No
  Sender: FDA-Public Use
  Company Number: US-BAYER-2013-154935

PATIENT
  Age: 61 Year
  Sex: Female
  Weight: 58.96 kg

DRUGS (6)
  1. ALEVE CAPLET [Suspect]
     Indication: ANALGESIC THERAPY
     Dosage: UNK
     Route: 048
     Dates: start: 2006
  2. TRAMADOL [Concomitant]
  3. ATENOLOL [Concomitant]
  4. LISINOPRIL [Concomitant]
  5. METFORMIN [Concomitant]
  6. IBUPROFEN [Concomitant]

REACTIONS (3)
  - Extra dose administered [None]
  - Incorrect drug administration duration [None]
  - Extra dose administered [None]
